FAERS Safety Report 9138971 (Version 4)
Quarter: 2013Q3

REPORT INFORMATION
  Report Type: Report from Study
  Country: US (occurrence: US)
  Receive Date: 20130305
  Receipt Date: 20130830
  Transmission Date: 20140515
  Serious: Yes (Hospitalization, Other)
  Sender: FDA-Public Use
  Company Number: US-US-EMD SERONO, INC.-7196337

PATIENT
  Age: 46 Year
  Sex: Female

DRUGS (6)
  1. REBIF [Suspect]
     Indication: RELAPSING-REMITTING MULTIPLE SCLEROSIS
     Route: 058
     Dates: start: 20121025
  2. REBIF [Suspect]
     Route: 058
  3. BACLOFEN [Concomitant]
     Indication: PAIN
  4. XANAX [Concomitant]
     Indication: ANXIETY
     Dates: start: 1999, end: 2008
  5. XANAX [Concomitant]
     Dates: start: 201209
  6. AMITRIPTYLINE [Concomitant]
     Indication: ANXIETY
     Dates: start: 1999, end: 2008

REACTIONS (13)
  - Dehydration [Recovered/Resolved]
  - Vomiting [Recovered/Resolved]
  - Tunnel vision [Not Recovered/Not Resolved]
  - Anxiety [Recovered/Resolved]
  - Multiple sclerosis relapse [Recovered/Resolved]
  - Visual impairment [Not Recovered/Not Resolved]
  - Neuropathy peripheral [Not Recovered/Not Resolved]
  - Fibromyalgia [Not Recovered/Not Resolved]
  - Weight increased [Not Recovered/Not Resolved]
  - Vision blurred [Not Recovered/Not Resolved]
  - Injection site bruising [Not Recovered/Not Resolved]
  - Injection site pain [Not Recovered/Not Resolved]
  - Injection site erythema [Not Recovered/Not Resolved]
